FAERS Safety Report 5222848-6 (Version None)
Quarter: 2007Q1

REPORT INFORMATION
  Report Type: 
  Country: None (occurrence: None)
  Receive Date: 20070129
  Receipt Date: 20070126
  Transmission Date: 20070707
  Serious: Yes (Hospitalization, Disabling)
  Sender: FDA-Public Use
  Company Number: JP-JPN-A200700181

PATIENT
  Age: 72 Year
  Sex: Male

DRUGS (1)
  1. VALTREX [Suspect]
     Indication: HERPES ZOSTER
     Route: 048

REACTIONS (4)
  - ASTHENIA [None]
  - DYSARTHRIA [None]
  - GAIT DISTURBANCE [None]
  - NIGHTMARE [None]
